FAERS Safety Report 25004108 (Version 3)
Quarter: 2025Q3

REPORT INFORMATION
  Report Type: Report from Study
  Country: BR (occurrence: BR)
  Receive Date: 20250224
  Receipt Date: 20250828
  Transmission Date: 20251020
  Serious: Yes (Other)
  Sender: JOHNSON AND JOHNSON
  Company Number: BR-JNJFOC-20250252483

PATIENT
  Age: 56 Year
  Sex: Female
  Weight: 175 kg

DRUGS (2)
  1. INFLIXIMAB [Suspect]
     Active Substance: INFLIXIMAB
     Indication: Ankylosing spondylitis
     Route: 041
     Dates: end: 20241008
  2. INFLIXIMAB [Suspect]
     Active Substance: INFLIXIMAB
     Route: 041

REACTIONS (5)
  - Tuberculosis [Unknown]
  - Pruritus [Recovered/Resolved]
  - Toxicity to various agents [Recovered/Resolved]
  - Infusion related reaction [Recovered/Resolved]
  - Aphonia [Recovered/Resolved]
